FAERS Safety Report 9128733 (Version 1)
Quarter: 2013Q1

REPORT INFORMATION
  Report Type: Spontaneous
  Country: FR (occurrence: FR)
  Receive Date: 20130228
  Receipt Date: 20130228
  Transmission Date: 20140127
  Serious: Yes (Hospitalization, Other)
  Sender: FDA-Public Use
  Company Number: FR-ELI_LILLY_AND_COMPANY-FR201302005587

PATIENT
  Sex: Female
  Weight: 48 kg

DRUGS (6)
  1. ZYPREXA [Suspect]
     Dosage: 5 MG, QD
     Route: 048
     Dates: end: 20121113
  2. MODOPAR [Concomitant]
     Dosage: 250 MG, QD
  3. DEPAKOTE [Concomitant]
     Indication: BIPOLAR DISORDER
     Dosage: 250 MG, BID
  4. LEVOTHYROX [Concomitant]
     Dosage: 50 MG, UNKNOWN
  5. PARACETAMOL [Concomitant]
     Dosage: 500 MG, PRN
  6. VITAMIN D3 [Concomitant]
     Dosage: 1 DF, UNKNOWN

REACTIONS (8)
  - Fall [Recovered/Resolved]
  - Orthostatic hypotension [Recovering/Resolving]
  - Renal failure chronic [Unknown]
  - Pulmonary arterial hypertension [Unknown]
  - General physical health deterioration [Unknown]
  - Weight decreased [Unknown]
  - Gait disturbance [Unknown]
  - Nervous system disorder [Unknown]
